FAERS Safety Report 18467189 (Version 1)
Quarter: 2020Q4

REPORT INFORMATION
  Report Type: Spontaneous
  Country: US (occurrence: US)
  Receive Date: 20201104
  Receipt Date: 20201104
  Transmission Date: 20210114
  Serious: Yes (Hospitalization)
  Sender: FDA-Public Use
  Company Number: None

PATIENT
  Age: 43 Year
  Sex: Male
  Weight: 98 kg

DRUGS (7)
  1. ERGOCALCIFEROL. [Concomitant]
     Active Substance: ERGOCALCIFEROL
  2. PREDNISONE. [Concomitant]
     Active Substance: PREDNISONE
  3. WELLBUTRIN XL [Concomitant]
     Active Substance: BUPROPION HYDROCHLORIDE
  4. CHOLESTYRAMINE (QUESTRAN) [Concomitant]
  5. HUMIRA [Suspect]
     Active Substance: ADALIMUMAB
     Dates: end: 20191121
  6. CYANOCOBALAMIN  (VITAMIN B-12) [Concomitant]
  7. ISOSORBIDE DINITRATE (ISORDIL) [Concomitant]

REACTIONS (1)
  - Crohn^s disease [None]

NARRATIVE: CASE EVENT DATE: 20191122
